FAERS Safety Report 25048852 (Version 1)
Quarter: 2025Q1

REPORT INFORMATION
  Report Type: Spontaneous
  Country: US (occurrence: US)
  Receive Date: 20250307
  Receipt Date: 20250307
  Transmission Date: 20250409
  Serious: No
  Sender: SAMSUNG BIOEPIS
  Company Number: US-SAMSUNG BIOEPIS-SB-2024-14476

PATIENT

DRUGS (1)
  1. HADLIMA [Suspect]
     Active Substance: ADALIMUMAB-BWWD
     Indication: Ankylosing spondylitis
     Dosage: PT IS BEING SWITCHED FROM 40MG/0.4ML TO 40MG/0.8ML, STARTED ABOUT FOUR WEEKS AGO.
     Route: 058
     Dates: start: 2024

REACTIONS (4)
  - Inflammation [Not Recovered/Not Resolved]
  - Product dose omission issue [Unknown]
  - Off label use [Unknown]
  - Product packaging quantity issue [Unknown]
